FAERS Safety Report 18867606 (Version 1)
Quarter: 2021Q1

REPORT INFORMATION
  Report Type: Spontaneous
  Country: US (occurrence: US)
  Receive Date: 20210209
  Receipt Date: 20210209
  Transmission Date: 20210420
  Serious: Yes (Hospitalization, Other)
  Sender: FDA-Public Use
  Company Number: US-MEDEXUS PHARMA, INC.-2021MED00017

PATIENT
  Age: 76 Year
  Sex: Female
  Weight: 53.97 kg

DRUGS (2)
  1. RINVOQ [Concomitant]
     Active Substance: UPADACITINIB
  2. RASUVO [Suspect]
     Active Substance: METHOTREXATE SODIUM
     Indication: RHEUMATOID ARTHRITIS
     Dosage: UNK, 1X/WEEK, INJECTED USUALLY IN THIGH (ROTATING FROM ONE THIGH TO THE OTHER) OR A COUPLE OF TIMES
     Dates: start: 2020, end: 202012

REACTIONS (6)
  - Pneumonia [Not Recovered/Not Resolved]
  - Swelling [Recovering/Resolving]
  - Body temperature increased [Unknown]
  - COVID-19 [Recovering/Resolving]
  - Delirium [Unknown]
  - Dyspnoea [Unknown]

NARRATIVE: CASE EVENT DATE: 20201214
